FAERS Safety Report 20076918 (Version 1)
Quarter: 2021Q4

REPORT INFORMATION
  Report Type: Spontaneous
  Country: US (occurrence: US)
  Receive Date: 20211116
  Receipt Date: 20211116
  Transmission Date: 20220303
  Serious: Yes (Hospitalization, Other)
  Sender: FDA-Public Use
  Company Number: US-TAKEDA-2021TUS070694

PATIENT
  Age: 12 Year
  Sex: Female

DRUGS (2)
  1. MIDODRINE [Suspect]
     Active Substance: MIDODRINE
     Indication: Postural orthostatic tachycardia syndrome
     Dosage: 10 MILLIGRAM, TID
     Route: 065
  2. MIDODRINE [Suspect]
     Active Substance: MIDODRINE
     Dosage: 10 MILLIGRAM, TID
     Route: 065

REACTIONS (4)
  - Hypertensive emergency [Recovered/Resolved]
  - Generalised tonic-clonic seizure [Recovered/Resolved]
  - Intentional overdose [Unknown]
  - Off label use [Unknown]
